FAERS Safety Report 5639737-5 (Version None)
Quarter: 2008Q1

REPORT INFORMATION
  Report Type: 
  Country: None (occurrence: None)
  Receive Date: 20080222
  Receipt Date: 20080122
  Transmission Date: 20080703
  Serious: Yes (Hospitalization)
  Sender: FDA-Public Use
  Company Number: TRP_01034_2008

PATIENT
  Sex: Female
  Weight: 76.6579 kg

DRUGS (9)
  1. INFERGEN/INTERFERON ALFACON-1/THREE RIVERS PHARMA [Suspect]
     Indication: HEPATITIS C
     Dosage: (9 UG SUBCUTANEOUS)
     Route: 058
     Dates: start: 20070117
  2. RIBAVIRIN [Suspect]
     Indication: HEPATITIS C
     Dosage: (600 MG BID ORAL)
     Route: 048
     Dates: start: 20070117
  3. SYNTHROID [Concomitant]
  4. LEXAPRO [Concomitant]
  5. MILK THISTLE [Concomitant]
  6. PROTONIX [Concomitant]
  7. XANAX [Concomitant]
  8. DIAZEPAM [Concomitant]
  9. OXYCODONE HCL [Concomitant]

REACTIONS (25)
  - ALANINE AMINOTRANSFERASE INCREASED [None]
  - ANAEMIA [None]
  - ANION GAP DECREASED [None]
  - ASPARTATE AMINOTRANSFERASE INCREASED [None]
  - ASTHENIA [None]
  - BALANCE DISORDER [None]
  - BLOOD BILIRUBIN INCREASED [None]
  - BLOOD CALCIUM DECREASED [None]
  - BLOOD GLUCOSE INCREASED [None]
  - BLOOD PRESSURE INCREASED [None]
  - BLOOD THYROID STIMULATING HORMONE DECREASED [None]
  - DEEP VEIN THROMBOSIS [None]
  - DISCOMFORT [None]
  - DIZZINESS [None]
  - ILL-DEFINED DISORDER [None]
  - LYMPHOCYTE PERCENTAGE INCREASED [None]
  - MEAN PLATELET VOLUME INCREASED [None]
  - MITRAL VALVE INCOMPETENCE [None]
  - THROMBOCYTOPENIA [None]
  - TREATMENT FAILURE [None]
  - TRICUSPID VALVE INCOMPETENCE [None]
  - URINARY TRACT INFECTION [None]
  - VITAMIN B12 DECREASED [None]
  - WEIGHT DECREASED [None]
  - WHITE BLOOD CELL COUNT DECREASED [None]
